FAERS Safety Report 7390463-4 (Version None)
Quarter: 2011Q2

REPORT INFORMATION
  Report Type: 
  Country: None (occurrence: None)
  Receive Date: 20110401
  Receipt Date: 20110330
  Transmission Date: 20111010
  Serious: Yes (Death, Other)
  Sender: FDA-Public Use
  Company Number: US-AMGEN-USASP2011008594

PATIENT
  Age: 76 Year
  Sex: Female

DRUGS (3)
  1. NPLATE [Suspect]
     Indication: IDIOPATHIC THROMBOCYTOPENIC PURPURA
     Dosage: 6.7 A?G/KG, UNK
     Dates: start: 20091209, end: 20100429
  2. CORTICOSTEROIDS [Concomitant]
     Indication: IDIOPATHIC THROMBOCYTOPENIC PURPURA
     Dosage: UNK
     Dates: start: 20090324
  3. NPLATE [Suspect]
     Dates: start: 20090610, end: 20100506

REACTIONS (2)
  - DEATH [None]
  - SPINAL FRACTURE [None]
